FAERS Safety Report 7359799-7 (Version None)
Quarter: 2011Q1

REPORT INFORMATION
  Report Type: 
  Country: None (occurrence: None)
  Receive Date: 20110307
  Receipt Date: 20110221
  Transmission Date: 20110831
  Serious: Yes (Hospitalization)
  Sender: FDA-Public Use
  Company Number: LEO-2011-00218

PATIENT
  Age: 40 Year
  Sex: Male

DRUGS (3)
  1. WARFARIN (WARFARIN) (TABLETS) [Suspect]
     Indication: EMBOLISM VENOUS
     Dosage: 2.5 MG (2.5 MG, 1 IN 1 D), ORAL; 5 MG 95 MG, 1 IN 1 D), PER ORAL
     Route: 048
     Dates: start: 20101202
  2. WARFARIN (WARFARIN) (TABLETS) [Suspect]
     Indication: EMBOLISM VENOUS
     Dosage: 2.5 MG (2.5 MG, 1 IN 1 D), ORAL; 5 MG 95 MG, 1 IN 1 D), PER ORAL
     Route: 048
     Dates: end: 20110221
  3. INNOHEP [Suspect]
     Indication: EMBOLISM VENOUS
     Dosage: 11000 IU (1100 IU, 1 IN 1 D, SUBCUTANEOUS
     Route: 058
     Dates: start: 20101202, end: 20101209

REACTIONS (7)
  - DIARRHOEA [None]
  - LOWER RESPIRATORY TRACT INFECTION [None]
  - HEADACHE [None]
  - HAEMORRHAGE INTRACRANIAL [None]
  - METASTASES TO CENTRAL NERVOUS SYSTEM [None]
  - DEPRESSED LEVEL OF CONSCIOUSNESS [None]
  - FACIAL PARESIS [None]
